FAERS Safety Report 11322592 (Version 3)
Quarter: 2016Q1

REPORT INFORMATION
  Report Type: Spontaneous
  Country: US (occurrence: US)
  Receive Date: 20150730
  Receipt Date: 20160321
  Transmission Date: 20160525
  Serious: Yes (Hospitalization, Other)
  Sender: FDA-Public Use
  Company Number: US-PFIZER INC-2015253054

PATIENT
  Age: 67 Year
  Sex: Female
  Weight: 59 kg

DRUGS (8)
  1. SYNTHROID [Concomitant]
     Active Substance: LEVOTHYROXINE SODIUM
     Dosage: 100 MG, 1X/DAY
     Route: 048
     Dates: start: 1994
  2. PREDNISONE. [Concomitant]
     Active Substance: PREDNISONE
     Dosage: 4 DF, DAILY
     Dates: start: 201505
  3. LORAZEPAM. [Concomitant]
     Active Substance: LORAZEPAM
     Indication: SLEEP DISORDER
     Dosage: 0.05 MG, 1X/DAY (AT NIGHT)
     Dates: start: 201505
  4. VFEND [Suspect]
     Active Substance: VORICONAZOLE
     Indication: PNEUMONIA FUNGAL
     Dosage: 200 MG, 2X/DAY
     Route: 048
  5. TACROLIMUS. [Concomitant]
     Active Substance: TACROLIMUS
     Dosage: 1 MG, UNK
     Route: 048
     Dates: start: 201503
  6. PENTAMIDINE [Concomitant]
     Active Substance: PENTAMIDINE
     Indication: LUNG DISORDER
     Dosage: UNK, MONTHLY
     Dates: start: 201501
  7. CARTIA /00002701/ [Concomitant]
     Active Substance: ASPIRIN
     Dosage: 120 MG, UNK
     Dates: start: 201312
  8. VFEND [Suspect]
     Active Substance: VORICONAZOLE
     Dosage: 200 MG, 2X/DAY
     Route: 048
     Dates: start: 201507

REACTIONS (1)
  - Graft versus host disease [Recovered/Resolved]

NARRATIVE: CASE EVENT DATE: 201505
